FAERS Safety Report 9007460 (Version 1)
Quarter: 2013Q1

REPORT INFORMATION
  Report Type: Spontaneous
  Country: FR (occurrence: FR)
  Receive Date: 20130110
  Receipt Date: 20130110
  Transmission Date: 20140127
  Serious: Yes (Other)
  Sender: FDA-Public Use
  Company Number: FR-BRISTOL-MYERS SQUIBB COMPANY-16377624

PATIENT
  Age: 31 Year
  Sex: Female

DRUGS (2)
  1. BARACLUDE TABS 0.5 MG [Suspect]
     Indication: HEPATITIS B
     Dates: start: 20120123
  2. LOXEN LP [Suspect]
     Route: 048

REACTIONS (3)
  - Hypertension [Unknown]
  - Pregnancy [Recovered/Resolved]
  - Normal newborn [Unknown]
